FAERS Safety Report 11348431 (Version 1)
Quarter: 2015Q3

REPORT INFORMATION
  Report Type: Spontaneous
  Country: SE (occurrence: SE)
  Receive Date: 20150806
  Receipt Date: 20150806
  Transmission Date: 20151125
  Serious: Yes (Hospitalization)
  Sender: FDA-Public Use
  Company Number: PHHY2015SE091709

PATIENT
  Age: 77 Year
  Sex: Male

DRUGS (2)
  1. DIAZEPAM. [Suspect]
     Active Substance: DIAZEPAM
     Dosage: 400 MG
     Route: 065
  2. DIAZEPAM. [Suspect]
     Active Substance: DIAZEPAM
     Indication: DELIRIUM TREMENS
     Dosage: 10 MG
     Route: 042

REACTIONS (3)
  - Sedation [Recovering/Resolving]
  - Overdose [Recovering/Resolving]
  - Incorrect dose administered [Recovering/Resolving]
